FAERS Safety Report 17817899 (Version 2)
Quarter: 2020Q2

REPORT INFORMATION
  Report Type: Spontaneous
  Country: NL (occurrence: NL)
  Receive Date: 20200522
  Receipt Date: 20200528
  Transmission Date: 20200714
  Serious: Yes (Other)
  Sender: FDA-Public Use
  Company Number: NL-BAYER-2020-092692

PATIENT
  Age: 56 Year
  Sex: Male

DRUGS (1)
  1. CHLOROQUINE. [Suspect]
     Active Substance: CHLOROQUINE
     Indication: COVID-19
     Dosage: 300 MG, BID

REACTIONS (3)
  - Contraindicated product administered [None]
  - Haemolytic anaemia [Recovered/Resolved]
  - Methaemoglobinaemia [Recovered/Resolved]
